FAERS Safety Report 14805962 (Version 4)
Quarter: 2018Q2

REPORT INFORMATION
  Report Type: Report from Study
  Country: US (occurrence: US)
  Receive Date: 20180425
  Receipt Date: 20180613
  Transmission Date: 20180711
  Serious: Yes (Hospitalization, Other)
  Sender: FDA-Public Use
  Company Number: US-GILEAD-2018-0334636

PATIENT
  Age: 14 Year
  Sex: Male
  Weight: 52.4 kg

DRUGS (22)
  1. WARFARIN [Concomitant]
     Active Substance: WARFARIN
  2. CHOLECALCIFEROL [Concomitant]
     Active Substance: CHOLECALCIFEROL
  3. FLUTICASONE. [Concomitant]
     Active Substance: FLUTICASONE
  4. CLOTRIMAZOLE. [Concomitant]
     Active Substance: CLOTRIMAZOLE
  5. DIPHENHYDRAMINE. [Concomitant]
     Active Substance: DIPHENHYDRAMINE
  6. KCL [Concomitant]
     Active Substance: POTASSIUM CHLORIDE
  7. UPTRAVI [Suspect]
     Active Substance: SELEXIPAG
     Indication: PRODUCT USED FOR UNKNOWN INDICATION
     Dosage: 200 UG, BID
     Route: 065
  8. PROTONIX                           /00661201/ [Concomitant]
     Active Substance: OMEPRAZOLE
  9. FLECAINIDE [Concomitant]
     Active Substance: FLECAINIDE
  10. AMBRISENTAN [Suspect]
     Active Substance: AMBRISENTAN
     Dosage: 5 MG, QD
     Route: 048
  11. NACL [Concomitant]
     Active Substance: SODIUM CHLORIDE
  12. FERROUS SULFATE. [Concomitant]
     Active Substance: FERROUS SULFATE
  13. AMBRISENTAN [Suspect]
     Active Substance: AMBRISENTAN
     Indication: PULMONARY HYPERTENSION
     Dosage: 10 MG, QD
     Route: 048
     Dates: start: 20180227
  14. LASIX [Concomitant]
     Active Substance: FUROSEMIDE
  15. ACETAMINOPHEN. [Concomitant]
     Active Substance: ACETAMINOPHEN
  16. SUCRALFATE. [Concomitant]
     Active Substance: SUCRALFATE
  17. CALCIUM CARBONATE. [Concomitant]
     Active Substance: CALCIUM CARBONATE
  18. NEURONTIN [Concomitant]
     Active Substance: GABAPENTIN
  19. MELATONIN [Concomitant]
     Active Substance: MELATONIN
  20. MULTIVITAMIN                       /00097801/ [Concomitant]
     Active Substance: VITAMINS
  21. MEGESTROL [Concomitant]
     Active Substance: MEGESTROL
  22. EPLERENONE. [Concomitant]
     Active Substance: EPLERENONE

REACTIONS (4)
  - Cardiac failure [Not Recovered/Not Resolved]
  - Pulmonary oedema [Recovered/Resolved]
  - Off label use [Not Recovered/Not Resolved]
  - Pulmonary haemorrhage [Unknown]

NARRATIVE: CASE EVENT DATE: 20180227
